FAERS Safety Report 20001189 (Version 2)
Quarter: 2022Q2

REPORT INFORMATION
  Report Type: Report from Study
  Country: US (occurrence: US)
  Receive Date: 20211027
  Receipt Date: 20220610
  Transmission Date: 20220720
  Serious: No
  Sender: FDA-Public Use
  Company Number: US-NOVARTISTESTPH-NVSC2021US243710

PATIENT
  Sex: Female
  Weight: 160 kg

DRUGS (4)
  1. TREPROSTINIL [Suspect]
     Active Substance: TREPROSTINIL
     Indication: Pulmonary arterial hypertension
     Dosage: CONT (54.5 NG/KG/MIN)
     Route: 058
     Dates: start: 20210714
  2. TREPROSTINIL [Suspect]
     Active Substance: TREPROSTINIL
     Dosage: 54.5 NG/KG/MIN, CONT
     Route: 058
  3. AMBRISENTAN [Concomitant]
     Active Substance: AMBRISENTAN
     Indication: Product used for unknown indication
     Dosage: UNK
     Route: 065
  4. REVATIO [Concomitant]
     Active Substance: SILDENAFIL CITRATE
     Indication: Product used for unknown indication
     Dosage: UNK
     Route: 065

REACTIONS (2)
  - Laryngitis [Not Recovered/Not Resolved]
  - Infusion site pain [Unknown]
